FAERS Safety Report 14975561 (Version 1)
Quarter: 2018Q2

REPORT INFORMATION
  Report Type: Spontaneous
  Country: US (occurrence: US)
  Receive Date: 20180605
  Receipt Date: 20180605
  Transmission Date: 20180711
  Serious: No
  Sender: FDA-Public Use
  Company Number: US-BAUSCH-BL-2018-002520

PATIENT
  Age: 22 Year
  Sex: Male
  Weight: 72.64 kg

DRUGS (10)
  1. PREDNISONE. [Suspect]
     Active Substance: PREDNISONE
     Dosage: FOR SEVEN DAYS
     Route: 048
  2. PREDNISONE. [Suspect]
     Active Substance: PREDNISONE
     Dosage: AS NEEDED
     Route: 048
  3. EUCRISA [Suspect]
     Active Substance: CRISABOROLE
     Indication: DERMATITIS ATOPIC
     Dosage: APPLIED ON AFFECTED FACE AND BODY, TWICE A DAY AS NEEDED
     Route: 061
  4. DUPIXENT [Suspect]
     Active Substance: DUPILUMAB
     Dosage: EVERY TWO WEEKS
     Route: 065
  5. ELIDEL [Suspect]
     Active Substance: PIMECROLIMUS
     Indication: DERMATITIS ATOPIC
     Dosage: MIGHT BE TWICE A WEEK, AS NEEDED
     Route: 061
     Dates: start: 201711
  6. PREDNISONE. [Suspect]
     Active Substance: PREDNISONE
     Dosage: HALF TABLET FOR SIX DAYS
     Route: 048
  7. HYDROCORTISONE BUTYRATE. [Suspect]
     Active Substance: HYDROCORTISONE BUTYRATE
     Indication: DERMATITIS ATOPIC
     Dosage: ONCE OR TWICE A DAY ON FACE AS NEEDED
     Route: 061
  8. DUPIXENT [Suspect]
     Active Substance: DUPILUMAB
     Indication: DERMATITIS ATOPIC
     Route: 065
     Dates: start: 20180103
  9. PREDNISONE. [Suspect]
     Active Substance: PREDNISONE
     Dosage: FOR FOUR DAYS
     Route: 048
  10. PREDNISONE. [Suspect]
     Active Substance: PREDNISONE
     Indication: DERMATITIS ATOPIC
     Dosage: AS NEEDED (OCCASIONALLY)
     Route: 048
     Dates: start: 2018

REACTIONS (1)
  - Benzodiazepine drug level [Not Recovered/Not Resolved]

NARRATIVE: CASE EVENT DATE: 20180125
